FAERS Safety Report 15639551 (Version 2)
Quarter: 2019Q1

REPORT INFORMATION
  Report Type: Report from Study
  Country: US (occurrence: US)
  Receive Date: 20181120
  Receipt Date: 20190204
  Transmission Date: 20190417
  Serious: Yes (Hospitalization)
  Sender: FDA-Public Use
  Company Number: US-HORIZON-HPN-100-014-0045-2018

PATIENT
  Age: 6 Month
  Sex: Male

DRUGS (2)
  1. L-ARGININE [Concomitant]
     Active Substance: ARGININE
     Indication: ARGININOSUCCINATE SYNTHETASE DEFICIENCY
     Dates: start: 20180309
  2. RAVICTI [Suspect]
     Active Substance: GLYCEROL PHENYLBUTYRATE
     Indication: ARGININOSUCCINATE SYNTHETASE DEFICIENCY
     Dosage: 0.7 CC/ML TID SINCE 03-AUG-2018 UNTIL 17-SEP-2018, DOSE INCREASE ON 18-SEP-2018
     Route: 048
     Dates: start: 20180311

REACTIONS (1)
  - Hypoglycaemia [Recovered/Resolved]

NARRATIVE: CASE EVENT DATE: 20180905
